FAERS Safety Report 6524449-6 (Version None)
Quarter: 2010Q1

REPORT INFORMATION
  Report Type: 
  Country: None (occurrence: None)
  Receive Date: 20100104
  Receipt Date: 20091202
  Transmission Date: 20100710
  Serious: No
  Sender: FDA-Public Use
  Company Number: US-BAYER-200917466BCC

PATIENT
  Age: 77 Year
  Sex: Male
  Weight: 69 kg

DRUGS (13)
  1. ALEVE [Suspect]
     Indication: BACK PAIN
     Dosage: UNIT DOSE: 220 MG
     Route: 048
     Dates: start: 20091202
  2. SAW PALMETTO [Concomitant]
     Route: 065
  3. CHLORTHALIDONE [Concomitant]
     Route: 065
  4. AVODART [Concomitant]
     Route: 065
  5. CENTRUM SILVER [Concomitant]
     Route: 065
  6. ATENOLOL [Concomitant]
     Route: 065
  7. B-6 FOLATE [Concomitant]
     Route: 065
  8. LIPITOR [Concomitant]
     Route: 065
  9. KIRKLAND [Concomitant]
     Route: 065
  10. ASPIRIN [Concomitant]
     Route: 065
  11. LISINOPRIL [Concomitant]
     Route: 065
  12. TERAZOSIN HCL [Concomitant]
     Route: 065
  13. PEPTO-BISMOL [Concomitant]
     Route: 065

REACTIONS (1)
  - BACK PAIN [None]
